FAERS Safety Report 5734398-9 (Version None)
Quarter: 2008Q2

REPORT INFORMATION
  Report Type: 
  Country: None (occurrence: None)
  Receive Date: 20080314
  Receipt Date: 20071015
  Transmission Date: 20081010
  Serious: Yes (Other)
  Sender: FDA-Public Use
  Company Number: US-WYE-H00733907

PATIENT
  Age: 29 Year
  Sex: Male
  Weight: 90.7 kg

DRUGS (5)
  1. BENEFIX [Suspect]
     Indication: HAEMOPHILIA
  2. LIALDA [Suspect]
     Indication: COLITIS ULCERATIVE
     Dosage: 4.8 G 1X PER 1 DAY, ORAL
     Route: 048
  3. CLARITIN [Concomitant]
  4. LOVAZA [Concomitant]
  5. MULTIVITAMINS (ASCORBIC ACID/ERGOCALCIFEROL/FOLIC ACID/NICOTINAMIDE/PA [Concomitant]

REACTIONS (2)
  - DRUG INTERACTION [None]
  - VISION BLURRED [None]
